FAERS Safety Report 7901148-7 (Version None)
Quarter: 2011Q4

REPORT INFORMATION
  Report Type: 
  Country: None (occurrence: None)
  Receive Date: 20111108
  Receipt Date: 20111101
  Transmission Date: 20120403
  Serious: Yes (Hospitalization, Congenital Anomaly, Other)
  Sender: FDA-Public Use
  Company Number: US-PFIZER INC-2011105765

PATIENT
  Sex: Female
  Weight: 3.2 kg

DRUGS (3)
  1. ZOLOFT [Suspect]
     Indication: PANIC ATTACK
     Dosage: 50 MG, 1X/DAY
     Route: 064
  2. MULTI-VITAMINS [Concomitant]
     Dosage: UNK
     Route: 064
  3. ZOLOFT [Suspect]
     Indication: DEPRESSION
     Dosage: 100 MG, UNK
     Route: 064
     Dates: start: 20000101

REACTIONS (12)
  - RIGHT VENTRICLE OUTFLOW TRACT OBSTRUCTION [None]
  - ATRIAL SEPTAL DEFECT [None]
  - PATENT DUCTUS ARTERIOSUS [None]
  - PULMONARY ARTERY STENOSIS CONGENITAL [None]
  - CARDIOMEGALY [None]
  - CORONARY ARTERY DISEASE [None]
  - RIGHT VENTRICULAR HYPERTROPHY [None]
  - PULMONARY VALVE STENOSIS [None]
  - TRANSPOSITION OF THE GREAT VESSELS [None]
  - FOETAL EXPOSURE DURING PREGNANCY [None]
  - CYANOSIS [None]
  - AORTIC VALVE INCOMPETENCE [None]
